FAERS Safety Report 4515844-5 (Version None)
Quarter: 2004Q4

REPORT INFORMATION
  Report Type: 
  Country: None (occurrence: None)
  Receive Date: 20041001
  Receipt Date: 20040504
  Transmission Date: 20050328
  Serious: Yes (Hospitalization)
  Sender: FDA-Public Use
  Company Number: TPA2004A00437

PATIENT
  Age: 56 Year
  Sex: Male
  Weight: 73.0291 kg

DRUGS (4)
  1. ACTOS [Suspect]
     Indication: DIABETES MELLITUS NON-INSULIN-DEPENDENT
     Dosage: SEE IMAGE
     Route: 048
     Dates: start: 20040128, end: 20040405
  2. ACTOS [Suspect]
     Indication: DIABETES MELLITUS NON-INSULIN-DEPENDENT
     Dosage: SEE IMAGE
     Route: 048
     Dates: start: 20031119
  3. HUMULIN 70/30 [Concomitant]
  4. ZESTRIL [Concomitant]

REACTIONS (7)
  - DIFFICULTY IN WALKING [None]
  - FLUID OVERLOAD [None]
  - GENERALISED OEDEMA [None]
  - HYPERGLYCAEMIA [None]
  - OEDEMA GENITAL [None]
  - TREATMENT NONCOMPLIANCE [None]
  - WEIGHT INCREASED [None]
